FAERS Safety Report 16008934 (Version 1)
Quarter: 2019Q1

REPORT INFORMATION
  Report Type: Spontaneous
  Country: FR (occurrence: FR)
  Receive Date: 20190225
  Receipt Date: 20190225
  Transmission Date: 20190418
  Serious: Yes (Hospitalization)
  Sender: FDA-Public Use
  Company Number: FR-ORION CORPORATION ORION PHARMA-19_00005483

PATIENT
  Age: 59 Year
  Sex: Female

DRUGS (4)
  1. CHRONO-INDOCID [Interacting]
     Active Substance: INDOMETHACIN
     Indication: INFLAMMATION
     Dosage: STRENGTH: 75 MG
     Route: 048
     Dates: start: 2004, end: 20180305
  2. IMETH [Suspect]
     Active Substance: METHOTREXATE SODIUM
     Indication: PSORIATIC ARTHROPATHY
     Dosage: STRENGTH: 10 MG
     Route: 048
     Dates: start: 2004, end: 20180305
  3. OMEPRAZOLE. [Interacting]
     Active Substance: OMEPRAZOLE
     Indication: GASTROINTESTINAL DISORDER THERAPY
     Route: 048
     Dates: end: 201803
  4. INDOCID [Interacting]
     Active Substance: INDOMETHACIN
     Indication: INFLAMMATION
     Dosage: STRENGTH: 25 MG
     Route: 048
     Dates: start: 2004, end: 20180305

REACTIONS (2)
  - Drug interaction [Unknown]
  - Pancytopenia [Recovered/Resolved]

NARRATIVE: CASE EVENT DATE: 20180305
